FAERS Safety Report 23544073 (Version 1)
Quarter: 2024Q1

REPORT INFORMATION
  Report Type: Spontaneous
  Country: US (occurrence: None)
  Receive Date: 20240216
  Receipt Date: 20240216
  Transmission Date: 20240410
  Serious: No
  Sender: FDA-Public Use
  Company Number: None

PATIENT
  Age: 64 Year
  Sex: Female
  Weight: 83.7 kg

DRUGS (1)
  1. ZEPBOUND [Suspect]
     Active Substance: TIRZEPATIDE
     Indication: Weight decreased
     Dates: start: 20240131, end: 20240207

REACTIONS (7)
  - Nausea [None]
  - Diarrhoea [None]
  - Palpitations [None]
  - Eating disorder [None]
  - Dyspnoea [None]
  - Blood pressure decreased [None]
  - International normalised ratio increased [None]

NARRATIVE: CASE EVENT DATE: 20240209
